FAERS Safety Report 5453277-8 (Version None)
Quarter: 2007Q3

REPORT INFORMATION
  Report Type: 
  Country: None (occurrence: None)
  Receive Date: 20070914
  Receipt Date: 20070904
  Transmission Date: 20080115
  Serious: Yes (Other)
  Sender: FDA-Public Use
  Company Number: US-PFIZER INC-2007074897

PATIENT
  Age: 79 Year
  Sex: Female
  Weight: 52.2 kg

DRUGS (13)
  1. LYRICA [Suspect]
     Indication: BURNING SENSATION
  2. LYRICA [Suspect]
     Indication: PAIN IN EXTREMITY
  3. TOFRANIL [Concomitant]
  4. CRESTOR [Concomitant]
  5. ATENOLOL [Concomitant]
  6. ZANTAC 150 [Concomitant]
  7. CENTRUM [Concomitant]
  8. CITRACAL [Concomitant]
  9. ALPHA LIPOIC ACID [Concomitant]
  10. XANAX [Concomitant]
  11. LIDODERM [Concomitant]
  12. NITROGLYCERIN [Concomitant]
  13. PROCRIT [Concomitant]

REACTIONS (10)
  - BALANCE DISORDER [None]
  - COLD SWEAT [None]
  - DRUG ADMINISTRATION ERROR [None]
  - EMOTIONAL DISORDER [None]
  - FATIGUE [None]
  - FEELING HOT [None]
  - PALLOR [None]
  - SPEECH DISORDER [None]
  - THINKING ABNORMAL [None]
  - TRANSIENT ISCHAEMIC ATTACK [None]
